FAERS Safety Report 8150067-2 (Version None)
Quarter: 2012Q1

REPORT INFORMATION
  Report Type: 
  Country: None (occurrence: None)
  Receive Date: 20120220
  Receipt Date: 20120209
  Transmission Date: 20120608
  Serious: Yes (Death, Hospitalization)
  Sender: FDA-Public Use
  Company Number: BR-AMGEN-BRASP2012009352

PATIENT
  Age: 56 Year
  Sex: Male

DRUGS (4)
  1. PREDNISONE [Concomitant]
     Dosage: UNK
  2. PROPRANOLOL [Concomitant]
     Dosage: UNK
  3. ENBREL [Suspect]
     Indication: PSORIATIC ARTHROPATHY
     Dosage: 25 MG, 2X/WEEK
     Route: 058
     Dates: start: 20040824, end: 20110901
  4. FOLIC ACID [Concomitant]
     Dosage: UNK

REACTIONS (1)
  - PNEUMONITIS [None]
